FAERS Safety Report 5675489-0 (Version None)
Quarter: 2008Q1

REPORT INFORMATION
  Report Type: 
  Country: None (occurrence: None)
  Receive Date: 20080321
  Receipt Date: 20080311
  Transmission Date: 20080703
  Serious: Yes (Other)
  Sender: FDA-Public Use
  Company Number: JP-JNJFOC-20040202513

PATIENT
  Sex: Female
  Weight: 49 kg

DRUGS (27)
  1. REMICADE [Suspect]
     Route: 042
  2. REMICADE [Suspect]
     Route: 042
  3. REMICADE [Suspect]
     Route: 042
  4. REMICADE [Suspect]
     Route: 042
  5. REMICADE [Suspect]
     Route: 042
  6. REMICADE [Suspect]
     Route: 042
  7. REMICADE [Suspect]
     Route: 042
  8. REMICADE [Suspect]
     Route: 042
  9. REMICADE [Suspect]
     Route: 042
  10. REMICADE [Suspect]
     Route: 042
  11. REMICADE [Suspect]
     Route: 042
  12. REMICADE [Suspect]
     Route: 042
  13. REMICADE [Suspect]
     Route: 042
  14. REMICADE [Suspect]
     Route: 042
  15. REMICADE [Suspect]
     Indication: RHEUMATOID ARTHRITIS
     Route: 042
  16. METHOTREXATE [Suspect]
     Indication: RHEUMATOID ARTHRITIS
     Route: 048
  17. DICLOFENAC SODIUM [Concomitant]
     Indication: RHEUMATOID ARTHRITIS
     Route: 054
  18. FOLIC ACID [Concomitant]
     Route: 048
  19. PREDNISOLONE [Concomitant]
     Indication: RHEUMATOID ARTHRITIS
     Route: 048
  20. LANSOPRAZOLE [Concomitant]
  21. BROTIZOLAM [Concomitant]
     Route: 048
  22. FAMOTIDINE [Concomitant]
     Route: 048
  23. MAGNESIUM OXIDE [Concomitant]
     Route: 048
  24. MOSAPRIDE CITRATE [Concomitant]
     Route: 048
  25. SUCRALFATE [Concomitant]
     Route: 048
  26. TERBINAFINE HCL [Concomitant]
  27. METHOTREXATE [Concomitant]
     Route: 048

REACTIONS (5)
  - ALANINE AMINOTRANSFERASE INCREASED [None]
  - ASPARTATE AMINOTRANSFERASE INCREASED [None]
  - DOUBLE STRANDED DNA ANTIBODY [None]
  - LUPUS-LIKE SYNDROME [None]
  - RASH [None]
